FAERS Safety Report 21936479 (Version 1)
Quarter: 2023Q1

REPORT INFORMATION
  Report Type: Report from Study
  Country: US (occurrence: US)
  Receive Date: 20230201
  Receipt Date: 20230201
  Transmission Date: 20230418
  Serious: No
  Sender: FDA-Public Use
  Company Number: US-INCYTE CORPORATION-2020IN012714

PATIENT

DRUGS (4)
  1. PEMIGATINIB [Suspect]
     Active Substance: PEMIGATINIB
     Indication: Cholangiocarcinoma
     Dosage: 13.5 MILLIGRAM QAM X 14 DAYS THEN 7 DAYS OFF
     Route: 048
     Dates: start: 20201205
  2. PEMIGATINIB [Suspect]
     Active Substance: PEMIGATINIB
     Dosage: 9MG ONCE A DAY FIRST 14 DAYS OF EACH 21 DAY CYCLE
     Route: 048
  3. PEMIGATINIB [Suspect]
     Active Substance: PEMIGATINIB
     Dosage: 13.5 MILLIGRAM
     Route: 048
     Dates: start: 20201124
  4. PEMIGATINIB [Suspect]
     Active Substance: PEMIGATINIB
     Dosage: 13.5 MILLIGRAM, QOD
     Route: 048
     Dates: start: 20201124

REACTIONS (5)
  - Paraesthesia [Unknown]
  - Burning sensation [Unknown]
  - Hypoaesthesia [Unknown]
  - Hypogeusia [Unknown]
  - Hyperphosphataemia [Not Recovered/Not Resolved]
